FAERS Safety Report 14251457 (Version 2)
Quarter: 2018Q1

REPORT INFORMATION
  Report Type: Report from Study
  Country: US (occurrence: US)
  Receive Date: 20171205
  Receipt Date: 20180208
  Transmission Date: 20180508
  Serious: Yes (Disabling)
  Sender: FDA-Public Use
  Company Number: US-ACTELION-A-US2017-163395

PATIENT
  Age: 85 Year
  Sex: Female

DRUGS (1)
  1. OPSUMIT [Suspect]
     Active Substance: MACITENTAN
     Indication: PULMONARY ARTERIAL HYPERTENSION
     Dosage: 10 MG, QD
     Route: 048
     Dates: start: 20171101, end: 20171118

REACTIONS (4)
  - Dyspnoea [Not Recovered/Not Resolved]
  - Unevaluable event [Not Recovered/Not Resolved]
  - Chest discomfort [Unknown]
  - Speech disorder [Unknown]

NARRATIVE: CASE EVENT DATE: 201711
